FAERS Safety Report 8831689 (Version 1)
Quarter: 2012Q4

REPORT INFORMATION
  Report Type: 
  Country: US (occurrence: US)
  Receive Date: 20121009
  Receipt Date: 20121009
  Transmission Date: 20130627
  Serious: Yes (Disabling, Other)
  Sender: FDA-Public Use
  Company Number: US-009507513-0506USA01338

PATIENT

DRUGS (6)
  1. FOSAMAX [Suspect]
     Indication: OSTEOPOROSIS
     Dosage: 70 mg, QW
     Route: 048
     Dates: start: 199512
  2. LUPRON [Concomitant]
     Indication: PROSTATE CANCER METASTATIC
     Dosage: 7.5 mg, QM
     Route: 030
     Dates: start: 1989
  3. FLUTAMIDE [Concomitant]
     Indication: PROSTATE CANCER METASTATIC
     Dosage: 750-1050
     Route: 048
     Dates: start: 1989
  4. CALCIUM (UNSPECIFIED) [Concomitant]
  5. VITAMIN D (UNSPECIFIED) [Concomitant]
  6. NAPROSYN [Concomitant]
     Indication: OSTEOARTHRITIS
     Dosage: 250 mg, qd
     Route: 048
     Dates: start: 1995

REACTIONS (6)
  - Femur fracture [Not Recovered/Not Resolved]
  - Lumbar spinal stenosis [Not Recovered/Not Resolved]
  - Arthritis [Not Recovered/Not Resolved]
  - Osteoporosis [Not Recovered/Not Resolved]
  - Femur fracture [Not Recovered/Not Resolved]
  - Femur fracture [Not Recovered/Not Resolved]
